FAERS Safety Report 8205020-7 (Version None)
Quarter: 2012Q1

REPORT INFORMATION
  Report Type: 
  Country: None (occurrence: None)
  Receive Date: 20120309
  Receipt Date: 20120223
  Transmission Date: 20120608
  Serious: Yes (Hospitalization)
  Sender: FDA-Public Use
  Company Number: JP-2012-10515

PATIENT
  Age: 70 Year
  Sex: Male

DRUGS (3)
  1. WARFARIN SODIUM [Suspect]
     Dosage: , ORAL
     Route: 048
     Dates: end: 20100601
  2. PLAVIX [Suspect]
     Dosage: ,ORAL
     Route: 048
     Dates: end: 20100601
  3. PLETAL [Suspect]
     Indication: IN-STENT ARTERIAL RESTENOSIS
     Dosage: ,ORAL
     Route: 048
     Dates: start: 20100501, end: 20100601

REACTIONS (4)
  - HAEMATOCHEZIA [None]
  - INTESTINAL HAEMATOMA [None]
  - IN-STENT ARTERIAL RESTENOSIS [None]
  - GASTROINTESTINAL EROSION [None]
